FAERS Safety Report 5447899-8 (Version None)
Quarter: 2007Q3

REPORT INFORMATION
  Report Type: 
  Country: None (occurrence: None)
  Receive Date: 20070910
  Receipt Date: 20070831
  Transmission Date: 20080115
  Serious: Yes (Hospitalization)
  Sender: FDA-Public Use
  Company Number: JP-PFIZER INC-2007065470

PATIENT
  Sex: Female
  Weight: 5.5 kg

DRUGS (5)
  1. PONTAL [Suspect]
     Indication: NASOPHARYNGITIS
     Route: 048
     Dates: start: 20070805, end: 20070805
  2. ALIMEZINE [Concomitant]
     Route: 048
     Dates: start: 20070805, end: 20070805
  3. ANTOBRON [Concomitant]
     Route: 048
     Dates: start: 20070805, end: 20070805
  4. FENOTEROL HYDROBROMIDE [Concomitant]
     Route: 048
     Dates: start: 20070805, end: 20070805
  5. ERICANAL [Concomitant]
     Route: 048
     Dates: start: 20070805, end: 20070805

REACTIONS (1)
  - HYPOTHERMIA [None]
